FAERS Safety Report 10164893 (Version 2)
Quarter: 2014Q2

REPORT INFORMATION
  Report Type: Spontaneous
  Country: US (occurrence: US)
  Receive Date: 20140510
  Receipt Date: 20140510
  Transmission Date: 20141212
  Serious: No
  Sender: FDA-Public Use
  Company Number: US-BRISTOL-MYERS SQUIBB COMPANY-19536978

PATIENT
  Age: 66 Year
  Sex: Male
  Weight: 92.97 kg

DRUGS (19)
  1. BYETTA PEN DISPOSABLE [Suspect]
     Indication: TYPE 2 DIABETES MELLITUS
     Dosage: THERAPY STARTED 5MCG/2/1/DAY AND INCREASED TO 10MCG/2/1/DAY,B.NOC011266A,EXP-JUN2014
     Route: 058
  2. ASPIRIN [Concomitant]
  3. GLUCAGON [Concomitant]
  4. GLUCOSE [Concomitant]
  5. OMEPRAZOLE [Concomitant]
  6. ROSUVASTATIN [Concomitant]
  7. NITROGLYCERIN [Concomitant]
  8. MULTIVITAMIN [Concomitant]
  9. POTASSIUM CHLORIDE [Concomitant]
  10. METFORMIN [Concomitant]
  11. LEVOXACIN [Concomitant]
  12. FUROSEMIDE [Concomitant]
  13. GLIPIZIDE [Concomitant]
  14. FLAXSEED [Concomitant]
  15. FISH OIL [Concomitant]
  16. ETODOLAC [Concomitant]
  17. ENALAPRIL [Concomitant]
  18. CIPROFLOXACIN [Concomitant]
  19. ATENOLOL [Concomitant]

REACTIONS (4)
  - Fatigue [Unknown]
  - Product quality issue [Unknown]
  - Underdose [Unknown]
  - Blood glucose decreased [Unknown]
